FAERS Safety Report 9021049 (Version 1)
Quarter: 2013Q1

REPORT INFORMATION
  Report Type: Spontaneous
  Country: US (occurrence: US)
  Receive Date: 20130119
  Receipt Date: 20130119
  Transmission Date: 20140127
  Serious: No
  Sender: FDA-Public Use
  Company Number: US-ALLERGAN-1204415US

PATIENT
  Age: 49 Year
  Sex: Female

DRUGS (2)
  1. BOTOX COSMETIC [Suspect]
     Indication: SKIN WRINKLING
     Dosage: 23 UNITS, SINGLE
     Route: 030
     Dates: start: 20120323, end: 20120323
  2. RETINOL ACETAS [Concomitant]
     Indication: PRODUCT USED FOR UNKNOWN INDICATION
     Dosage: UNK
     Route: 065
     Dates: start: 20120325

REACTIONS (3)
  - Nasal ulcer [Recovered/Resolved]
  - Injection site rash [Recovered/Resolved]
  - Migraine [Recovered/Resolved]
